FAERS Safety Report 9277287 (Version 1)
Quarter: 2013Q2

REPORT INFORMATION
  Report Type: Spontaneous
  Country: DE (occurrence: DE)
  Receive Date: 20130508
  Receipt Date: 20130508
  Transmission Date: 20140414
  Serious: Yes (Death, Hospitalization)
  Sender: FDA-Public Use
  Company Number: DE-ROCHE-1220790

PATIENT
  Age: 85 Year
  Sex: Female

DRUGS (13)
  1. DIAZEPAM [Suspect]
     Indication: DEPRESSION
     Route: 048
     Dates: start: 20120719, end: 20120721
  2. DIAZEPAM [Suspect]
     Route: 048
     Dates: start: 20120722, end: 20120724
  3. DIAZEPAM [Suspect]
     Dosage: 10-15 MG
     Route: 048
     Dates: start: 20120714, end: 20120718
  4. HALDOL [Suspect]
     Indication: PRODUCT USED FOR UNKNOWN INDICATION
     Route: 048
     Dates: start: 20120712, end: 20120723
  5. HALDOL [Suspect]
     Route: 048
     Dates: start: 20120724, end: 20120724
  6. HALDOL [Suspect]
     Route: 048
     Dates: start: 20120715, end: 20120721
  7. ELONTRIL [Suspect]
     Indication: PRODUCT USED FOR UNKNOWN INDICATION
     Route: 048
     Dates: start: 20120719, end: 20120720
  8. ELONTRIL [Suspect]
     Route: 048
     Dates: start: 20120721, end: 20120724
  9. TAVOR (GERMANY) [Suspect]
     Indication: PRODUCT USED FOR UNKNOWN INDICATION
     Route: 048
     Dates: start: 20120724, end: 20120725
  10. VALSARTAN [Concomitant]
     Route: 048
     Dates: end: 20120730
  11. HCT HEXAL [Concomitant]
     Route: 048
     Dates: end: 20120730
  12. BISOPROLOL [Concomitant]
     Route: 048
     Dates: end: 20120730
  13. CORIFEO [Concomitant]
     Route: 048
     Dates: end: 20120730

REACTIONS (3)
  - Parkinsonism [Fatal]
  - Circulatory collapse [Fatal]
  - Dysphagia [Not Recovered/Not Resolved]
